FAERS Safety Report 23717817 (Version 1)
Quarter: 2024Q2

REPORT INFORMATION
  Report Type: Spontaneous
  Country: US (occurrence: None)
  Receive Date: 20240405
  Receipt Date: 20240405
  Transmission Date: 20240716
  Serious: Yes (Other)
  Sender: FDA-Public Use
  Company Number: None

PATIENT
  Age: 66 Year
  Sex: Female
  Weight: 62.1 kg

DRUGS (10)
  1. MOXIFLOXACIN OPHTHALMIC [Suspect]
     Active Substance: MOXIFLOXACIN HYDROCHLORIDE
     Indication: Eye injury
     Dosage: FREQUENCY : 4 TIMES A DAY?
     Route: 047
     Dates: start: 20240403, end: 20240404
  2. ATIVAN [Concomitant]
     Active Substance: LORAZEPAM
  3. ALBUTEROL [Concomitant]
     Active Substance: ALBUTEROL
  4. VITAMINS [Concomitant]
     Active Substance: VITAMINS
  5. GABA [Concomitant]
     Active Substance: HOMEOPATHICS
  6. VITAMIN D [Concomitant]
     Active Substance: VITAMIN D NOS
  7. UNSPECIFIED INGREDIENT [Concomitant]
     Active Substance: UNSPECIFIED INGREDIENT
  8. SIMETHICONE (DIMETHICONE) [Concomitant]
     Active Substance: DIMETHICONE
  9. MYLANTA [Concomitant]
     Active Substance: ALUMINUM HYDROXIDE\DIMETHICONE\MAGNESIUM HYDROXIDE
  10. MIRALAX [Concomitant]
     Active Substance: POLYETHYLENE GLYCOL 3350

REACTIONS (5)
  - Fatigue [None]
  - Nausea [None]
  - Diarrhoea [None]
  - Heart rate increased [None]
  - Blood pressure increased [None]

NARRATIVE: CASE EVENT DATE: 20240404
